FAERS Safety Report 12043622 (Version 1)
Quarter: 2016Q1

REPORT INFORMATION
  Report Type: Report from Study
  Country: US (occurrence: US)
  Receive Date: 20160208
  Receipt Date: 20160208
  Transmission Date: 20160526
  Serious: No
  Sender: FDA-Public Use
  Company Number: US-ABBVIE-15P-163-1355351-00

PATIENT
  Sex: Female

DRUGS (2)
  1. HUMIRA [Suspect]
     Active Substance: ADALIMUMAB
     Indication: CROHN^S DISEASE
     Route: 065
     Dates: start: 20140318
  2. HUMIRA [Suspect]
     Active Substance: ADALIMUMAB
     Route: 065

REACTIONS (9)
  - Fatigue [Unknown]
  - Diarrhoea [Unknown]
  - Fistula [Unknown]
  - Stress [Unknown]
  - Ulcer [Unknown]
  - Drug ineffective [Not Recovered/Not Resolved]
  - Flatulence [Unknown]
  - Anxiety [Unknown]
  - Injection site pain [Unknown]
